FAERS Safety Report 21016629 (Version 2)
Quarter: 2022Q3

REPORT INFORMATION
  Report Type: Spontaneous
  Country: FR (occurrence: FR)
  Receive Date: 20220628
  Receipt Date: 20220701
  Transmission Date: 20221027
  Serious: Yes (Other)
  Sender: FDA-Public Use
  Company Number: FR-BIOGARAN-B22000913

PATIENT
  Sex: Male

DRUGS (169)
  1. ACETAMINOPHEN\CAFFEINE\OPIUM [Suspect]
     Active Substance: ACETAMINOPHEN\CAFFEINE\OPIUM
     Indication: Product used for unknown indication
     Dosage: 4 DOSAGE FORM, QD (4 CAPSULES/DIE)
     Route: 065
     Dates: start: 20161208
  2. ACETAMINOPHEN [Suspect]
     Active Substance: ACETAMINOPHEN
     Indication: Product used for unknown indication
     Dosage: UNK
     Route: 065
     Dates: start: 20160616
  3. ZOPICLONE [Suspect]
     Active Substance: ZOPICLONE
     Indication: Product used for unknown indication
     Dosage: 7.5 MILLIGRAM, QD (7.5 MG, QD)
     Route: 065
     Dates: start: 20201228
  4. ZOPICLONE [Suspect]
     Active Substance: ZOPICLONE
     Dosage: 7.5 MILLIGRAM, QD (7.5 MG, QD)
     Route: 065
     Dates: start: 20210930
  5. ZOPICLONE [Suspect]
     Active Substance: ZOPICLONE
     Dosage: 7.5 MILLIGRAM, QD (7.5 MG, QD)
     Route: 065
     Dates: start: 20220121
  6. ZOPICLONE [Suspect]
     Active Substance: ZOPICLONE
     Dosage: 7.5 MILLIGRAM, QD (7.5 MG, QD)
     Route: 065
     Dates: start: 20220110
  7. ZOPICLONE [Suspect]
     Active Substance: ZOPICLONE
     Dosage: 7.5 MILLIGRAM, QD (7.5 MG, QD)
     Route: 065
     Dates: start: 20220408
  8. TRAMADOL [Suspect]
     Active Substance: TRAMADOL
     Indication: Product used for unknown indication
     Dosage: 50 MILLIGRAM, QD (50 MG, QD)
     Route: 065
     Dates: start: 20160616, end: 2016
  9. TRAMADOL [Suspect]
     Active Substance: TRAMADOL
     Dosage: 3 DOSAGE FORM, QD (1 DOSAGE FORM, TID)
     Route: 065
     Dates: start: 20160704
  10. TRAMADOL [Suspect]
     Active Substance: TRAMADOL
     Dosage: 3 DOSAGE FORM, QD (1 DOSAGE FORM, TID)
     Route: 065
     Dates: start: 20160722
  11. TRAMADOL [Suspect]
     Active Substance: TRAMADOL
     Dosage: 1 DOSAGE FORM, TID
     Route: 065
     Dates: start: 20160818
  12. TRAMADOL [Suspect]
     Active Substance: TRAMADOL
     Dosage: 3 DOSAGE FORM, QD (1 DOSAGE FORM, TID)
     Route: 065
     Dates: start: 20161004
  13. TRAMADOL [Suspect]
     Active Substance: TRAMADOL
     Dosage: 2 DOSAGE FORM, QD (1 DOSAGE FORM, BID)
     Route: 065
     Dates: start: 20170529
  14. ACETAMINOPHEN [Suspect]
     Active Substance: ACETAMINOPHEN
     Indication: Product used for unknown indication
     Dosage: 3 GRAM, QD (1 G, TID)
     Route: 065
     Dates: start: 20160704
  15. ACETAMINOPHEN [Suspect]
     Active Substance: ACETAMINOPHEN
     Dosage: 3 GRAM, QD (1 G, TID)
     Route: 065
     Dates: start: 20160722
  16. ACETAMINOPHEN [Suspect]
     Active Substance: ACETAMINOPHEN
     Dosage: 3 GRAM, QD (1 G, TID)
     Route: 065
     Dates: start: 20160818
  17. ACETAMINOPHEN [Suspect]
     Active Substance: ACETAMINOPHEN
     Dosage: 3 GRAM, QD (1 G, TID)
     Route: 065
     Dates: start: 20170529
  18. ACETAMINOPHEN [Suspect]
     Active Substance: ACETAMINOPHEN
     Indication: Product used for unknown indication
     Dosage: 8 DOSAGE FORM, QD (2 DOSAGE FORM, QID)
     Route: 065
     Dates: start: 20160622
  19. ACETAMINOPHEN [Suspect]
     Active Substance: ACETAMINOPHEN
     Dosage: 4 GRAM, QD (1 G, QID)
     Route: 065
     Dates: start: 20200818
  20. ACETAMINOPHEN [Suspect]
     Active Substance: ACETAMINOPHEN
     Dosage: 1 GRAM, QD (1 G, QD)
     Route: 065
     Dates: start: 20200917
  21. ACETAMINOPHEN [Suspect]
     Active Substance: ACETAMINOPHEN
     Dosage: 4 GRAM, QD (1 G, QID)
     Route: 065
     Dates: start: 20201228
  22. ACETAMINOPHEN [Suspect]
     Active Substance: ACETAMINOPHEN
     Dosage: 4 GRAM, QD (1 G, QID)
     Route: 065
     Dates: start: 20210421
  23. ACETAMINOPHEN [Suspect]
     Active Substance: ACETAMINOPHEN
     Dosage: 4 GRAM, QD (1 G, QID)
     Route: 065
     Dates: start: 20210917
  24. ACETAMINOPHEN [Suspect]
     Active Substance: ACETAMINOPHEN
     Dosage: 4 GRAM, QD (1 G, QID)
     Route: 065
     Dates: start: 20220201
  25. ACETAMINOPHEN [Suspect]
     Active Substance: ACETAMINOPHEN
     Dosage: 6 GRAM, MONTHLY (1 G 6 TIMES A MONTH)
     Route: 065
     Dates: start: 20200917
  26. CYAMEMAZINE [Suspect]
     Active Substance: CYAMEMAZINE
     Indication: Product used for unknown indication
     Dosage: 0.5 DOSAGE FORM, QD (0.5 DOSAGE FORM, QD
     Route: 065
     Dates: start: 20171017
  27. CYAMEMAZINE [Suspect]
     Active Substance: CYAMEMAZINE
     Dosage: 25 MILLIGRAM, QD (25 MG, QD)
     Route: 065
     Dates: start: 20190222
  28. CYAMEMAZINE [Suspect]
     Active Substance: CYAMEMAZINE
     Dosage: 25 MILLIGRAM, QD (25 MG, QD)
     Route: 065
     Dates: start: 20190829
  29. CYAMEMAZINE [Suspect]
     Active Substance: CYAMEMAZINE
     Dosage: 30 GTT DROPS (30 DROPS)
     Route: 065
     Dates: start: 20210421
  30. CYAMEMAZINE [Suspect]
     Active Substance: CYAMEMAZINE
     Dosage: 25 MILLIGRAM, QD (25 MG, QD)
     Route: 065
     Dates: start: 20200619
  31. CYAMEMAZINE [Suspect]
     Active Substance: CYAMEMAZINE
     Dosage: 25 MILLIGRAM, QD (25 MG, QD)
     Route: 065
     Dates: start: 20220201
  32. CYAMEMAZINE [Suspect]
     Active Substance: CYAMEMAZINE
     Dosage: 20 MILLIGRAM, QD (20 MG, QD)
     Route: 065
     Dates: start: 20180523
  33. CYAMEMAZINE [Suspect]
     Active Substance: CYAMEMAZINE
     Dosage: 25 MILLIGRAM, QD (25 MG, QD)
     Route: 065
     Dates: start: 20210625
  34. CYAMEMAZINE [Suspect]
     Active Substance: CYAMEMAZINE
     Dosage: 25 MILLIGRAM, QD (25 MG, QD)
     Route: 065
     Dates: start: 20191121
  35. CYAMEMAZINE [Suspect]
     Active Substance: CYAMEMAZINE
     Dosage: 25 MILLIGRAM, QD (25 MG, QD)
     Route: 065
     Dates: start: 20201228
  36. CYAMEMAZINE [Suspect]
     Active Substance: CYAMEMAZINE
     Dosage: 25 MILLIGRAM, QD (25 MG, QD)
     Route: 065
     Dates: start: 20190520
  37. CYAMEMAZINE [Suspect]
     Active Substance: CYAMEMAZINE
     Dosage: 25 MILLIGRAM, QD (25 MG, QD
     Route: 065
     Dates: start: 20180426
  38. CYAMEMAZINE [Suspect]
     Active Substance: CYAMEMAZINE
     Dosage: 25 MILLIGRAM, QD (25 MG, QD
     Route: 065
     Dates: start: 20180828
  39. CYAMEMAZINE [Suspect]
     Active Substance: CYAMEMAZINE
     Dosage: 25 MILLIGRAM, QD (25 MG, QD
     Route: 065
     Dates: start: 20210917
  40. CYAMEMAZINE [Suspect]
     Active Substance: CYAMEMAZINE
     Dosage: 25 MILLIGRAM, QD (25 MG, QD
     Route: 065
     Dates: start: 20180615
  41. CYAMEMAZINE [Suspect]
     Active Substance: CYAMEMAZINE
     Dosage: 25 MILLIGRAM, QD (25 MG, QD
     Route: 065
     Dates: start: 20190307
  42. CYAMEMAZINE [Suspect]
     Active Substance: CYAMEMAZINE
     Dosage: 25 MILLIGRAM, QD (25 MG, QD
     Route: 065
     Dates: start: 20200504
  43. CYAMEMAZINE [Suspect]
     Active Substance: CYAMEMAZINE
     Dosage: 25 MILLIGRAM, QD (25 MG, QD
     Route: 065
     Dates: start: 20180109
  44. CYAMEMAZINE [Suspect]
     Active Substance: CYAMEMAZINE
     Dosage: 25 MILLIGRAM, QD (25 MG, QD)
     Route: 065
     Dates: start: 20200917
  45. CYAMEMAZINE [Suspect]
     Active Substance: CYAMEMAZINE
     Dosage: 25 MILLIGRAM, QD (25 MG, QD
     Route: 065
     Dates: start: 20181129
  46. CYAMEMAZINE [Suspect]
     Active Substance: CYAMEMAZINE
     Dosage: 25 MILLIGRAM, QD (25 MG, QD
     Route: 065
     Dates: start: 20220408
  47. CYAMEMAZINE [Suspect]
     Active Substance: CYAMEMAZINE
     Dosage: 25 MILLIGRAM, QD (25 MG, QD
     Route: 065
     Dates: start: 20180212
  48. CYAMEMAZINE [Suspect]
     Active Substance: CYAMEMAZINE
     Dosage: 25 MILLIGRAM, QD (25 MG, QD
     Route: 065
     Dates: start: 20210930
  49. CYAMEMAZINE [Suspect]
     Active Substance: CYAMEMAZINE
     Dosage: 25 MILLIGRAM, QD (25 MG, QD
     Route: 065
     Dates: start: 20200417
  50. CYAMEMAZINE [Suspect]
     Active Substance: CYAMEMAZINE
     Dosage: 25 MILLIGRAM, QD (25 MG, QD
     Route: 065
     Dates: start: 20200120
  51. CYAMEMAZINE [Suspect]
     Active Substance: CYAMEMAZINE
     Dosage: 25 MILLIGRAM, QD (25 MG, QD
     Route: 065
     Dates: start: 20180116
  52. CYAMEMAZINE [Suspect]
     Active Substance: CYAMEMAZINE
     Dosage: 25 MILLIGRAM, QD (25 MG, QD
     Route: 065
     Dates: start: 20220121
  53. CYAMEMAZINE [Suspect]
     Active Substance: CYAMEMAZINE
     Dosage: 25 MILLIGRAM, QD (25 MG, QD
     Route: 065
     Dates: start: 20180904
  54. CYAMEMAZINE [Suspect]
     Active Substance: CYAMEMAZINE
     Dosage: UNK
     Route: 065
  55. AMITRIPTYLINE HYDROCHLORIDE [Suspect]
     Active Substance: AMITRIPTYLINE HYDROCHLORIDE
     Indication: Product used for unknown indication
     Dosage: 0.5 MILLIGRAM, QD (0.5 MG, QD AT BEDTIME)
     Route: 048
     Dates: start: 20170104
  56. AMITRIPTYLINE HYDROCHLORIDE [Suspect]
     Active Substance: AMITRIPTYLINE HYDROCHLORIDE
     Dosage: 30 GTT DROPS (30 DROPS )
     Route: 065
     Dates: start: 20201228
  57. AMITRIPTYLINE HYDROCHLORIDE [Suspect]
     Active Substance: AMITRIPTYLINE HYDROCHLORIDE
     Dosage: 50 MILLIGRAM, QD (50 MG, QD  )
     Route: 065
     Dates: start: 20170330
  58. AMITRIPTYLINE HYDROCHLORIDE [Suspect]
     Active Substance: AMITRIPTYLINE HYDROCHLORIDE
     Dosage: 50 MILLIGRAM, QD (50 MG, QD  )
     Route: 065
  59. AMITRIPTYLINE HYDROCHLORIDE [Suspect]
     Active Substance: AMITRIPTYLINE HYDROCHLORIDE
     Dosage: 50 GRAM, QD (50 G, QD )
     Route: 065
     Dates: start: 20170320
  60. AMITRIPTYLINE HYDROCHLORIDE [Suspect]
     Active Substance: AMITRIPTYLINE HYDROCHLORIDE
     Dosage: 40 MILLIGRAM, QD (40 MG, QD )
     Route: 065
     Dates: start: 20201228
  61. AMITRIPTYLINE HYDROCHLORIDE [Suspect]
     Active Substance: AMITRIPTYLINE HYDROCHLORIDE
     Dosage: 100 MILLIGRAM, QD
     Route: 065
     Dates: start: 20180220
  62. AMITRIPTYLINE HYDROCHLORIDE [Suspect]
     Active Substance: AMITRIPTYLINE HYDROCHLORIDE
     Dosage: 40 MILLIGRAM, QD (40 MG, QD  )
     Route: 065
     Dates: start: 20200818
  63. AMITRIPTYLINE HYDROCHLORIDE [Suspect]
     Active Substance: AMITRIPTYLINE HYDROCHLORIDE
     Dosage: 30 GTT DROPS (30 DROPS )
     Route: 065
     Dates: start: 20220201
  64. AMITRIPTYLINE HYDROCHLORIDE [Suspect]
     Active Substance: AMITRIPTYLINE HYDROCHLORIDE
     Dosage: 30 GTT DROPS (30 DROPS )
     Route: 065
     Dates: start: 20220121
  65. AMITRIPTYLINE HYDROCHLORIDE [Suspect]
     Active Substance: AMITRIPTYLINE HYDROCHLORIDE
     Dosage: 30 GTT DROPS (30 DROPS )
     Route: 065
     Dates: start: 20220408
  66. AMITRIPTYLINE HYDROCHLORIDE [Suspect]
     Active Substance: AMITRIPTYLINE HYDROCHLORIDE
     Dosage: 25 MILLIGRAM, QD (25 MG, QD
     Route: 065
  67. AMITRIPTYLINE HYDROCHLORIDE [Suspect]
     Active Substance: AMITRIPTYLINE HYDROCHLORIDE
     Dosage: UNK UNK, QD (UNK UNK, QD
     Route: 065
     Dates: start: 20200818
  68. AMITRIPTYLINE HYDROCHLORIDE [Suspect]
     Active Substance: AMITRIPTYLINE HYDROCHLORIDE
     Dosage: 1 DOSAGE FORM, QD (1 TABLET AT BEDTIME)
     Route: 048
     Dates: start: 20170111
  69. METHYLPREDNISOLONE SODIUM SUCCINATE [Suspect]
     Active Substance: METHYLPREDNISOLONE SODIUM SUCCINATE
     Indication: Product used for unknown indication
     Dosage: UNK (DOSAGE FORM)
     Route: 065
     Dates: start: 20160617
  70. SACCHAROMYCES CEREVISIAE [Suspect]
     Active Substance: SACCHAROMYCES CEREVISIAE
     Indication: Product used for unknown indication
     Dosage: UNK
     Route: 065
     Dates: start: 20160622
  71. AMOXICILLIN\CLAVULANIC ACID [Suspect]
     Active Substance: AMOXICILLIN\CLAVULANIC ACID
     Indication: Product used for unknown indication
     Dosage: 2 DOSAGE FORM, QD (1 DOSAGE FORM, BID)
     Route: 065
     Dates: start: 20160616
  72. AMOXICILLIN\CLAVULANIC ACID [Suspect]
     Active Substance: AMOXICILLIN\CLAVULANIC ACID
     Dosage: 3 DOSAGE FORM, QD (1 DF MORNING, NOON AND EVENING)
     Route: 065
     Dates: start: 20160616
  73. ACETAMINOPHEN\CODEINE PHOSPHATE [Suspect]
     Active Substance: ACETAMINOPHEN\CODEINE PHOSPHATE
     Indication: Product used for unknown indication
     Dosage: UNK, NOT ASSOCIATE WITH DOLIPRANE
     Route: 065
     Dates: start: 20160622
  74. CYMBALTA [Suspect]
     Active Substance: DULOXETINE HYDROCHLORIDE
     Indication: Product used for unknown indication
     Dosage: 30 GRAM, QD (30 G, QD  )
     Route: 065
     Dates: start: 20170418
  75. CYMBALTA [Suspect]
     Active Substance: DULOXETINE HYDROCHLORIDE
     Dosage: 120 MILLIGRAM, QD (60 MG, BID
     Route: 065
     Dates: start: 20210917
  76. CYMBALTA [Suspect]
     Active Substance: DULOXETINE HYDROCHLORIDE
     Dosage: 120 MILLIGRAM, QD (120 MG, QD
     Route: 065
     Dates: start: 20180109
  77. CYMBALTA [Suspect]
     Active Substance: DULOXETINE HYDROCHLORIDE
     Dosage: 120 MILLIGRAM, QD (120 MG, QD
     Route: 065
     Dates: start: 20190903
  78. CYMBALTA [Suspect]
     Active Substance: DULOXETINE HYDROCHLORIDE
     Dosage: 120 MILLIGRAM, QD (120 MG, QD
     Route: 065
     Dates: start: 20180904
  79. CYMBALTA [Suspect]
     Active Substance: DULOXETINE HYDROCHLORIDE
     Dosage: 60 MILLIGRAM, QD (60 MG, QD
     Route: 065
     Dates: start: 20170522
  80. CYMBALTA [Suspect]
     Active Substance: DULOXETINE HYDROCHLORIDE
     Dosage: 60 MILLIGRAM, QD (60 MG, QD
     Route: 065
     Dates: start: 20210625
  81. CYMBALTA [Suspect]
     Active Substance: DULOXETINE HYDROCHLORIDE
     Dosage: 120 MILLIGRAM, QD (60 MG, BID
     Route: 065
     Dates: start: 20220201
  82. CYMBALTA [Suspect]
     Active Substance: DULOXETINE HYDROCHLORIDE
     Dosage: 120 MILLIGRAM, QD (60 MG, BID
     Route: 065
     Dates: start: 20200917
  83. CYMBALTA [Suspect]
     Active Substance: DULOXETINE HYDROCHLORIDE
     Dosage: 60 MILLIGRAM, QD (60 MG, QD)
     Route: 065
     Dates: start: 20170904
  84. CYMBALTA [Suspect]
     Active Substance: DULOXETINE HYDROCHLORIDE
     Dosage: 120 MILLIGRAM, QD (120 MG, QD)
     Route: 065
     Dates: start: 20181129
  85. CYMBALTA [Suspect]
     Active Substance: DULOXETINE HYDROCHLORIDE
     Dosage: 120 MILLIGRAM, QD (120 MG, QD)
     Route: 065
     Dates: start: 20180116
  86. CYMBALTA [Suspect]
     Active Substance: DULOXETINE HYDROCHLORIDE
     Dosage: 120 MILLIGRAM (120 MG)
     Route: 065
     Dates: start: 20200417
  87. CYMBALTA [Suspect]
     Active Substance: DULOXETINE HYDROCHLORIDE
     Dosage: 120 MILLIGRAM, QD (60 MG, BID)
     Route: 065
     Dates: start: 20200120
  88. CYMBALTA [Suspect]
     Active Substance: DULOXETINE HYDROCHLORIDE
     Dosage: 120 MILLIGRAM, QD (60 MG, BID)
     Route: 065
     Dates: start: 20210421
  89. CYMBALTA [Suspect]
     Active Substance: DULOXETINE HYDROCHLORIDE
     Dosage: 120 MILLIGRAM (120 MG)
     Route: 065
     Dates: start: 20200619
  90. CYMBALTA [Suspect]
     Active Substance: DULOXETINE HYDROCHLORIDE
     Dosage: 120 MILLIGRAM, QD (120 MG, QD)
     Route: 065
     Dates: start: 20180523
  91. CYMBALTA [Suspect]
     Active Substance: DULOXETINE HYDROCHLORIDE
     Dosage: 120 MILLIGRAM, QD (120 MG, QD)
     Route: 065
     Dates: start: 20191121
  92. CYMBALTA [Suspect]
     Active Substance: DULOXETINE HYDROCHLORIDE
     Dosage: 120 MILLIGRAM, QD (60 MG, BID)
     Route: 065
     Dates: start: 20210930
  93. CYMBALTA [Suspect]
     Active Substance: DULOXETINE HYDROCHLORIDE
     Dosage: 120 MILLIGRAM, QD (60 MG, BID)
     Route: 065
     Dates: start: 20220121
  94. CYMBALTA [Suspect]
     Active Substance: DULOXETINE HYDROCHLORIDE
     Dosage: 120 MILLIGRAM, QD (120 MG, QD)
     Route: 065
     Dates: start: 20180426
  95. CYMBALTA [Suspect]
     Active Substance: DULOXETINE HYDROCHLORIDE
     Dosage: 120 MILLIGRAM, QD (120 MG, QD)
     Route: 065
     Dates: start: 20180615
  96. CYMBALTA [Suspect]
     Active Substance: DULOXETINE HYDROCHLORIDE
     Dosage: 60 MILLIGRAM, QD (60 MG, QD)
     Route: 065
     Dates: start: 20171017
  97. CYMBALTA [Suspect]
     Active Substance: DULOXETINE HYDROCHLORIDE
     Dosage: 120 MILLIGRAM, QD (120 MG, QD)
     Route: 065
     Dates: start: 20190222
  98. CYMBALTA [Suspect]
     Active Substance: DULOXETINE HYDROCHLORIDE
     Dosage: 120 MILLIGRAM, QD (120 MG, QD)
     Route: 065
     Dates: start: 20180220
  99. CYMBALTA [Suspect]
     Active Substance: DULOXETINE HYDROCHLORIDE
     Dosage: 120 MILLIGRAM, QD (120 MG, QD
     Route: 065
     Dates: start: 20181129
  100. CYMBALTA [Suspect]
     Active Substance: DULOXETINE HYDROCHLORIDE
     Dosage: 120 MILLIGRAM, QD (120 MG, QD)
     Route: 065
     Dates: start: 20190307
  101. CYMBALTA [Suspect]
     Active Substance: DULOXETINE HYDROCHLORIDE
     Dosage: 120 MILLIGRAM, QD (120 MG, QD)
     Route: 065
     Dates: start: 20180420
  102. CYMBALTA [Suspect]
     Active Substance: DULOXETINE HYDROCHLORIDE
     Dosage: 120 MILLIGRAM, QD (120 MG, QD)
     Route: 065
     Dates: start: 20190520
  103. CYMBALTA [Suspect]
     Active Substance: DULOXETINE HYDROCHLORIDE
     Dosage: 120 MILLIGRAM, QD (120 MG, QD)
     Route: 065
     Dates: start: 20190829
  104. CYMBALTA [Suspect]
     Active Substance: DULOXETINE HYDROCHLORIDE
     Dosage: 120 MILLIGRAM, QD (60 MG, BID)
     Route: 065
     Dates: start: 20201228
  105. CYMBALTA [Suspect]
     Active Substance: DULOXETINE HYDROCHLORIDE
     Dosage: 1 DOSAGE FORM, QD (1 DOSAGE FORM, QD
     Route: 065
     Dates: start: 20170810
  106. CYMBALTA [Suspect]
     Active Substance: DULOXETINE HYDROCHLORIDE
     Dosage: 120 MILLIGRAM, QD (120 MG, QD)
     Route: 065
     Dates: start: 20180212
  107. CYMBALTA [Suspect]
     Active Substance: DULOXETINE HYDROCHLORIDE
     Dosage: 120 MILLIGRAM (120 MG)
     Route: 065
     Dates: start: 20200504
  108. CYMBALTA [Suspect]
     Active Substance: DULOXETINE HYDROCHLORIDE
     Dosage: 120 MILLIGRAM, QD (120 MG, QD)
     Route: 065
     Dates: start: 20180828
  109. CYMBALTA [Suspect]
     Active Substance: DULOXETINE HYDROCHLORIDE
     Dosage: 120 MILLIGRAM, QD (60 MG, BID))
     Route: 065
     Dates: start: 20220408
  110. PROPRANOLOL [Suspect]
     Active Substance: PROPRANOLOL HYDROCHLORIDE
     Indication: Product used for unknown indication
     Dosage: 40 MILLIGRAM, QD (0.5-1 DOSAGE FORM IN THE MORNING)
     Route: 065
     Dates: start: 20201228
  111. PROPRANOLOL [Suspect]
     Active Substance: PROPRANOLOL HYDROCHLORIDE
     Dosage: 40 MILLIGRAM, QD (40 MG, QD) (0.5-1 DOSAGE FORM IN THE MORNING)
     Route: 065
     Dates: start: 20210917
  112. PROPRANOLOL [Suspect]
     Active Substance: PROPRANOLOL HYDROCHLORIDE
     Dosage: 40 MILLIGRAM, QD (40 MG, QD)
     Route: 065
     Dates: start: 20220221
  113. PROPRANOLOL [Suspect]
     Active Substance: PROPRANOLOL HYDROCHLORIDE
     Dosage: 1 DOSAGE FORM, QD (1 TABLET IN THE MORNING)
     Route: 065
     Dates: start: 20220201
  114. KETOPROFEN [Suspect]
     Active Substance: KETOPROFEN
     Indication: Product used for unknown indication
     Dosage: 100 MILLIGRAM, QD (50 MG, BID)
     Route: 065
  115. KETOPROFEN [Suspect]
     Active Substance: KETOPROFEN
     Dosage: 2 DOSAGE FORM, QD
     Route: 065
     Dates: start: 20170104
  116. ESOMEPRAZOLE [Suspect]
     Active Substance: ESOMEPRAZOLE
     Indication: Product used for unknown indication
     Dosage: 20 MILLIGRAM, QD (20 MG, QD)
     Route: 065
  117. TRAMADOL HYDROCHLORIDE [Suspect]
     Active Substance: TRAMADOL HYDROCHLORIDE
     Indication: Product used for unknown indication
     Dosage: 1 DOSAGE FORM, QD (1 DOSAGE FORM, QD)
     Route: 065
     Dates: start: 20160704
  118. TRAMADOL HYDROCHLORIDE [Suspect]
     Active Substance: TRAMADOL HYDROCHLORIDE
     Dosage: UNK
     Route: 065
     Dates: start: 20160722
  119. TRAMADOL HYDROCHLORIDE [Suspect]
     Active Substance: TRAMADOL HYDROCHLORIDE
     Dosage: UNK
     Route: 065
     Dates: start: 20161004
  120. TRAMADOL HYDROCHLORIDE [Suspect]
     Active Substance: TRAMADOL HYDROCHLORIDE
     Dosage: UNK
     Route: 065
     Dates: start: 20160818
  121. TRAMADOL HYDROCHLORIDE [Suspect]
     Active Substance: TRAMADOL HYDROCHLORIDE
     Dosage: UNK
     Route: 065
     Dates: start: 20170529
  122. INDOMETHACIN [Suspect]
     Active Substance: INDOMETHACIN
     Indication: Product used for unknown indication
     Dosage: 150 MILLIGRAM, QD (75 MG, BID)
     Route: 065
  123. TOPIRAMATE [Suspect]
     Active Substance: TOPIRAMATE
     Indication: Product used for unknown indication
     Dosage: 30 MILLIGRAM, QD (15 MG, BID)
     Route: 065
     Dates: start: 20200120
  124. ACUPAN [Suspect]
     Active Substance: NEFOPAM HYDROCHLORIDE
     Indication: Product used for unknown indication
     Dosage: 60 MILLIGRAM, QD (20 MG, TID)/ 3 DF, QD
     Route: 065
     Dates: start: 20180904
  125. ACUPAN [Suspect]
     Active Substance: NEFOPAM HYDROCHLORIDE
     Dosage: 60 MILLIGRAM, QD (20 MG, TID)
     Route: 065
     Dates: start: 20180523
  126. ACUPAN [Suspect]
     Active Substance: NEFOPAM HYDROCHLORIDE
     Dosage: 60 MILLIGRAM, QD (20 MG, TID)/ 3 DF, QD
     Route: 065
     Dates: start: 20180828
  127. ACUPAN [Suspect]
     Active Substance: NEFOPAM HYDROCHLORIDE
     Dosage: 60 MILLIGRAM, QD (20 MG, TID)/ 3 DF, QD
     Route: 065
     Dates: start: 20180426
  128. ACUPAN [Suspect]
     Active Substance: NEFOPAM HYDROCHLORIDE
     Dosage: 60 MILLIGRAM, QD (20 MG, TID)/ 3 DF, QD
     Route: 065
     Dates: start: 20170904
  129. ACUPAN [Suspect]
     Active Substance: NEFOPAM HYDROCHLORIDE
     Dosage: 60 MILLIGRAM, QD (20 MG, TID)/ 3 DF, QD
     Route: 065
     Dates: start: 20200504
  130. ACUPAN [Suspect]
     Active Substance: NEFOPAM HYDROCHLORIDE
     Dosage: 60 MILLIGRAM, QD (20 MG, TID)/ 1 AMPOULE 3X4 TIMES A DAY
     Route: 065
     Dates: start: 20200120
  131. ACUPAN [Suspect]
     Active Substance: NEFOPAM HYDROCHLORIDE
     Dosage: 60 MILLIGRAM, QD (20 MG, TID)/ 3 DF, QD
     Route: 065
     Dates: start: 20190307
  132. ACUPAN [Suspect]
     Active Substance: NEFOPAM HYDROCHLORIDE
     Dosage: 60 MILLIGRAM, QD (20 MG, TID)/ 3DF, QD
     Route: 065
     Dates: start: 20180212
  133. ACUPAN [Suspect]
     Active Substance: NEFOPAM HYDROCHLORIDE
     Dosage: 60 MILLIGRAM, QD (20 MG, TID/ 3 DF, QD
     Route: 065
     Dates: start: 20181129
  134. ACUPAN [Suspect]
     Active Substance: NEFOPAM HYDROCHLORIDE
     Dosage: 60 MILLIGRAM, QD (20 MG, TID)/ 3 DF, QD
     Route: 065
     Dates: start: 20180109
  135. ACUPAN [Suspect]
     Active Substance: NEFOPAM HYDROCHLORIDE
     Dosage: 60 MILLIGRAM, QD (20 MG, TID)/ 3 DF, QD
     Route: 065
     Dates: start: 20190903
  136. ACUPAN [Suspect]
     Active Substance: NEFOPAM HYDROCHLORIDE
     Dosage: 60 MILLIGRAM, QD (20 MG, TID)/ 3 DF, QD
     Route: 065
     Dates: start: 20190520
  137. ACUPAN [Suspect]
     Active Substance: NEFOPAM HYDROCHLORIDE
     Dosage: 60 MILLIGRAM, QD (20 MG, TID)/ 3 DF, QD
     Route: 065
     Dates: start: 20200917
  138. PIROXICAM BETADEX [Suspect]
     Active Substance: PIROXICAM BETADEX
     Indication: Product used for unknown indication
     Dosage: 1 DOSAGE FORM, QD (1 TABLET/DIE)
     Route: 065
     Dates: start: 20160704
  139. PIROXICAM BETADEX [Suspect]
     Active Substance: PIROXICAM BETADEX
     Dosage: 1 DOSAGE FORM, QD (1 TABLET/DIE)
     Route: 065
     Dates: start: 20160722
  140. AUGMENTIN [Suspect]
     Active Substance: AMOXICILLIN\CLAVULANATE POTASSIUM
     Indication: Product used for unknown indication
     Dosage: 3 DOSAGE FORM, QD (1 DOSAGE FORM, TID)
     Route: 065
     Dates: start: 20160622
  141. CHLORPROMAZINE [Suspect]
     Active Substance: CHLORPROMAZINE
     Indication: Product used for unknown indication
     Dosage: 30 GTT DROPS, PM (30 DROPS IN THE EVENING)
     Route: 065
     Dates: start: 20210421
  142. CHLORPROMAZINE [Suspect]
     Active Substance: CHLORPROMAZINE
     Dosage: 1 DOSAGE FORM, HS
     Route: 065
     Dates: start: 20181129
  143. CHLORPROMAZINE [Suspect]
     Active Substance: CHLORPROMAZINE
     Dosage: 1 DOSAGE FORM, PM
     Route: 065
     Dates: start: 20220121
  144. CHLORPROMAZINE [Suspect]
     Active Substance: CHLORPROMAZINE
     Dosage: 1 DOSAGE FORM, PM (1 TABLET IN THE EVENING)
     Route: 065
     Dates: start: 20190307
  145. CHLORPROMAZINE [Suspect]
     Active Substance: CHLORPROMAZINE
     Dosage: 1 DOSAGE FORM, QD/ 1 DOSAGE FORM AT BEDTIME AR 2 FOIS
     Route: 065
     Dates: start: 20190829
  146. CHLORPROMAZINE [Suspect]
     Active Substance: CHLORPROMAZINE
     Dosage: 1 DOSAGE FORM, QD (1 DOSAGE FORM AT BEDTIME AR 2 FOIS)
     Route: 065
     Dates: start: 20190520
  147. CHLORPROMAZINE [Suspect]
     Active Substance: CHLORPROMAZINE
     Dosage: 1 DOSAGE FORM, QD, 1 DOSAGE FORM IN THE EVENING. ORDONNANCE A R 2/ FOIS.
     Route: 065
     Dates: start: 20210625
  148. CHLORPROMAZINE [Suspect]
     Active Substance: CHLORPROMAZINE
     Dosage: 0.5 DOSAGE FORM, QD (0.5 TABLET AT BEDTIME)
     Route: 065
     Dates: start: 20171017
  149. CHLORPROMAZINE [Suspect]
     Active Substance: CHLORPROMAZINE
     Dosage: UNK, QD, UNKNOWN DOSAGE AT BEDTIME
     Route: 065
     Dates: start: 20180426
  150. CHLORPROMAZINE [Suspect]
     Active Substance: CHLORPROMAZINE
     Dosage: 25 MILLIGRAM, QD/ IN THE EVENING A R 3/FOIS
     Route: 065
     Dates: start: 20200619
  151. CHLORPROMAZINE [Suspect]
     Active Substance: CHLORPROMAZINE
     Dosage: 25 MILLIGRAM, QD, IN THE EVENING
     Route: 065
     Dates: start: 20200504
  152. CHLORPROMAZINE [Suspect]
     Active Substance: CHLORPROMAZINE
     Dosage: 1 DOSAGE FORM, HS
     Route: 065
     Dates: start: 20180523
  153. CHLORPROMAZINE [Suspect]
     Active Substance: CHLORPROMAZINE
     Dosage: 1 DOSAGE FORM, PM
     Route: 065
     Dates: start: 20220408
  154. CHLORPROMAZINE [Suspect]
     Active Substance: CHLORPROMAZINE
     Dosage: 1 DOSAGE FORM, HS
     Route: 065
     Dates: start: 20180615
  155. CHLORPROMAZINE [Suspect]
     Active Substance: CHLORPROMAZINE
     Dosage: 25 MILLIGRAM, PM
     Route: 065
     Dates: start: 20200120
  156. CHLORPROMAZINE [Suspect]
     Active Substance: CHLORPROMAZINE
     Dosage: UNK, AR 6 MOIS
     Route: 065
     Dates: start: 20190903
  157. CHLORPROMAZINE [Suspect]
     Active Substance: CHLORPROMAZINE
     Dosage: 1 DOSAGE FORM, PM
     Route: 065
     Dates: start: 20210917
  158. CHLORPROMAZINE [Suspect]
     Active Substance: CHLORPROMAZINE
     Dosage: 25 MILLIGRAM, PM
     Route: 065
     Dates: start: 20200417
  159. CHLORPROMAZINE [Suspect]
     Active Substance: CHLORPROMAZINE
     Dosage: 1 DOSAGE FORM, QD, 1 DOSAGE FORM AT BEDTIME AR 3 FOIS
     Route: 065
     Dates: start: 20190222
  160. CHLORPROMAZINE [Suspect]
     Active Substance: CHLORPROMAZINE
     Dosage: 1 DOSAGE FORM, PM
     Route: 065
     Dates: start: 20220201
  161. CHLORPROMAZINE [Suspect]
     Active Substance: CHLORPROMAZINE
     Dosage: 1 DOSAGE FORM, PM
     Route: 065
     Dates: start: 20191121
  162. CHLORPROMAZINE [Suspect]
     Active Substance: CHLORPROMAZINE
     Dosage: 1 DOSAGE FORM, PM
     Route: 065
     Dates: start: 20210930
  163. CHLORPROMAZINE [Suspect]
     Active Substance: CHLORPROMAZINE
     Dosage: 1 DOSAGE FORM, HS
     Route: 065
     Dates: start: 20180212
  164. CHLORPROMAZINE [Suspect]
     Active Substance: CHLORPROMAZINE
     Dosage: UNK, PM
     Route: 065
     Dates: start: 20180116
  165. CHLORPROMAZINE [Suspect]
     Active Substance: CHLORPROMAZINE
     Dosage: 1 DOSAGE FORM, HS
     Route: 065
     Dates: start: 20180904
  166. CHLORPROMAZINE [Suspect]
     Active Substance: CHLORPROMAZINE
     Dosage: 1 DOSAGE FORM, PM
     Route: 065
     Dates: start: 20201228
  167. CHLORPROMAZINE [Suspect]
     Active Substance: CHLORPROMAZINE
     Dosage: 1 DOSAGE FORM, PM
     Route: 065
     Dates: start: 20180828
  168. CHLORPROMAZINE [Suspect]
     Active Substance: CHLORPROMAZINE
     Dosage: 1 DOSAGE FORM, HS
     Route: 065
     Dates: start: 20180109
  169. CHLORPROMAZINE [Suspect]
     Active Substance: CHLORPROMAZINE
     Dosage: 1 DOSAGE FORM, PM
     Route: 065
     Dates: start: 20200917

REACTIONS (4)
  - Depression [Not Recovered/Not Resolved]
  - White matter lesion [Not Recovered/Not Resolved]
  - Diffuse axonal injury [Not Recovered/Not Resolved]
  - Amyotrophy [Not Recovered/Not Resolved]
